FAERS Safety Report 9235555 (Version 1)
Quarter: 2013Q1

REPORT INFORMATION
  Report Type: Spontaneous
  Country: US (occurrence: None)
  Receive Date: 20121031
  Receipt Date: 20121031
  Transmission Date: 20140127
  Serious: Yes (Other)
  Sender: FDA-Public Use
  Company Number: PHEH2012US012516

PATIENT
  Age: 34 Year
  Sex: Female

DRUGS (1)
  1. GILENYA (FTY) CAPSULE, 0.5MG [Suspect]
     Indication: MULTIPLE SCLEROSIS
     Route: 048
     Dates: start: 20120409

REACTIONS (7)
  - Staphylococcal infection [None]
  - Oral herpes [None]
  - Sinusitis [None]
  - Cystitis [None]
  - Urinary tract infection [None]
  - Diarrhoea [None]
  - Subcutaneous abscess [None]
